FAERS Safety Report 4894824-4 (Version None)
Quarter: 2006Q1

REPORT INFORMATION
  Report Type: 
  Country: None (occurrence: None)
  Receive Date: 20060127
  Receipt Date: 20060127
  Transmission Date: 20060701
  Serious: Yes (Death, Life-Threatening, Hospitalization, Other)
  Sender: FDA-Public Use
  Company Number: None

PATIENT
  Age: 3 Month
  Sex: Male
  Weight: 4 kg

DRUGS (4)
  1. A AND D ORIGINAL (LANOLIN/PETROLATUM) OINTMENT [Suspect]
     Indication: RASH
     Dosage: TOPICAL
     Route: 061
  2. A AND D ORIGINAL (LANOLIN/PETROLATUM) OINTMENT [Suspect]
     Indication: SKIN DISORDER
     Dosage: TOPICAL
     Route: 061
  3. OXYGEN [Suspect]
     Dosage: INHALTION
     Route: 055
  4. MINERAL OIL OIL [Suspect]
     Dosage: TOPICAL
     Route: 061

REACTIONS (17)
  - ANAEMIA [None]
  - BACTERAEMIA [None]
  - BURNS SECOND DEGREE [None]
  - BURNS THIRD DEGREE [None]
  - COMA [None]
  - DEVICE FAILURE [None]
  - DYSPNOEA [None]
  - EYE SWELLING [None]
  - LOSS OF CONSCIOUSNESS [None]
  - NERVOUS SYSTEM DISORDER [None]
  - PNEUMONIA [None]
  - PUPIL FIXED [None]
  - RESPIRATORY ARREST [None]
  - SKIN EXFOLIATION [None]
  - SUBDURAL HAEMORRHAGE NEONATAL [None]
  - TOXICOLOGIC TEST ABNORMAL [None]
  - WEIGHT GAIN POOR [None]
